FAERS Safety Report 9093941 (Version 1)
Quarter: 2013Q1

REPORT INFORMATION
  Report Type: Spontaneous
  Country: US (occurrence: None)
  Receive Date: 20130214
  Receipt Date: 20130214
  Transmission Date: 20140127
  Serious: No
  Sender: FDA-Public Use
  Company Number: None

PATIENT
  Sex: Male
  Weight: 95.26 kg

DRUGS (1)
  1. LUFFA OPERCULATA FRUIT\SABADILLA ALKALOIDS [Suspect]
     Dosage: SAFE EVERYDAY
     Dates: start: 20130101, end: 20130115

REACTIONS (5)
  - Dysphagia [None]
  - Dry mouth [None]
  - Dry throat [None]
  - Throat irritation [None]
  - Sinus disorder [None]
